FAERS Safety Report 9998106 (Version 1)
Quarter: 2014Q1

REPORT INFORMATION
  Report Type: Spontaneous
  Country: US (occurrence: US)
  Receive Date: 20140311
  Receipt Date: 20140311
  Transmission Date: 20141002
  Serious: Yes (Other)
  Sender: FDA-Public Use
  Company Number: US-GE HEALTHCARE MEDICAL DIAGNOSTICS-OSCN-PR-0906S-0298

PATIENT
  Age: 45 Year
  Sex: Male

DRUGS (8)
  1. OMNISCAN [Suspect]
     Indication: LIVER FUNCTION TEST ABNORMAL
     Route: 042
     Dates: start: 20051227, end: 20051227
  2. OMNISCAN [Suspect]
     Indication: LIVER TRANSPLANT
     Route: 042
     Dates: start: 20060130, end: 20060130
  3. OMNISCAN [Suspect]
     Indication: ABSCESS
  4. OMNISCAN [Suspect]
     Indication: THROMBOSIS
  5. OMNISCAN [Suspect]
     Indication: BACK PAIN
  6. GADOLINIUM (UNSPECIFIED) [Suspect]
     Indication: PRODUCT USED FOR UNKNOWN INDICATION
     Dates: start: 20060215, end: 20060215
  7. MULTIHANCE [Suspect]
     Indication: THROMBOSIS
     Route: 042
     Dates: start: 20060404, end: 20060404
  8. MULTIHANCE [Suspect]
     Indication: INFECTION

REACTIONS (1)
  - Nephrogenic systemic fibrosis [Recovered/Resolved]
